FAERS Safety Report 14720066 (Version 2)
Quarter: 2018Q2

REPORT INFORMATION
  Report Type: Spontaneous
  Country: FR (occurrence: FR)
  Receive Date: 20180405
  Receipt Date: 20180430
  Transmission Date: 20180711
  Serious: Yes (Hospitalization)
  Sender: FDA-Public Use
  Company Number: FR-JNJFOC-20180340350

PATIENT
  Age: 72 Year
  Sex: Male
  Weight: 43.7 kg

DRUGS (9)
  1. ZALDIAR [Suspect]
     Active Substance: ACETAMINOPHEN\TRAMADOL HYDROCHLORIDE
     Indication: PRODUCT USED FOR UNKNOWN INDICATION
     Dosage: 37.5 MG/325 MG
     Route: 048
     Dates: start: 2012
  2. ZOPICLONE [Concomitant]
     Active Substance: ZOPICLONE
     Route: 065
  3. LIBRAX [Concomitant]
     Active Substance: CHLORDIAZEPOXIDE HYDROCHLORIDE\CLIDINIUM BROMIDE
     Route: 065
  4. INEXIUM [Concomitant]
     Active Substance: ESOMEPRAZOLE
     Route: 065
  5. CLASTOBAN [Suspect]
     Active Substance: CLODRONIC ACID
     Indication: OSTEOLYSIS
     Route: 048
     Dates: end: 20180214
  6. MELAXOSE [Concomitant]
     Active Substance: LACTULOSE\PARAFFIN
     Route: 048
  7. LACTULOSE. [Concomitant]
     Active Substance: LACTULOSE
     Route: 065
  8. ZYTIGA [Suspect]
     Active Substance: ABIRATERONE ACETATE
     Indication: PROSTATE CANCER
     Route: 048
     Dates: end: 20180214
  9. ANTARENE [Suspect]
     Active Substance: IBUPROFEN SODIUM
     Indication: PRODUCT USED FOR UNKNOWN INDICATION
     Route: 048
     Dates: start: 20180212, end: 20180213

REACTIONS (1)
  - Tubulointerstitial nephritis [Recovering/Resolving]

NARRATIVE: CASE EVENT DATE: 20180219
